FAERS Safety Report 8192690-5 (Version None)
Quarter: 2012Q1

REPORT INFORMATION
  Report Type: 
  Country: None (occurrence: None)
  Receive Date: 20120308
  Receipt Date: 20120229
  Transmission Date: 20120608
  Serious: Yes (Hospitalization, Other)
  Sender: FDA-Public Use
  Company Number: US-BAYER-2011-117976

PATIENT
  Age: 20 Year
  Sex: Female
  Weight: 60 kg

DRUGS (5)
  1. VICODIN [Concomitant]
     Dosage: UNK UNK, Q4HR
  2. YASMIN [Suspect]
     Indication: PREMENSTRUAL SYNDROME
     Dosage: UNK
     Route: 048
     Dates: start: 20070301, end: 20100601
  3. IBUPROFEN (ADVIL) [Concomitant]
  4. PEPCID [Concomitant]
     Dosage: 20 MG, BID
  5. DROSPIRENONE AND ETHINYL ESTRADIOL [Suspect]
     Indication: PREMENSTRUAL SYNDROME
     Dosage: UNK
     Route: 048
     Dates: start: 20070301, end: 20100601

REACTIONS (8)
  - EMOTIONAL DISTRESS [None]
  - ABDOMINAL PAIN UPPER [None]
  - INJURY [None]
  - ANXIETY [None]
  - CHOLELITHIASIS [None]
  - APPENDICECTOMY [None]
  - PAIN [None]
  - CHOLECYSTITIS CHRONIC [None]
